FAERS Safety Report 7634868-2 (Version None)
Quarter: 2011Q3

REPORT INFORMATION
  Report Type: 
  Country: None (occurrence: None)
  Receive Date: 20110726
  Receipt Date: 20110718
  Transmission Date: 20111222
  Serious: No
  Sender: FDA-Public Use
  Company Number: US-BIOGENIDEC-2011BI026904

PATIENT
  Sex: Male

DRUGS (3)
  1. TYLENOL-500 [Concomitant]
     Indication: PREMEDICATION
  2. TYSABRI [Suspect]
     Indication: MULTIPLE SCLEROSIS
     Route: 042
     Dates: start: 20070122, end: 20110711
  3. BENADRYL [Concomitant]
     Indication: PREMEDICATION

REACTIONS (5)
  - ERECTILE DYSFUNCTION [None]
  - URINARY RETENTION [None]
  - INFREQUENT BOWEL MOVEMENTS [None]
  - VISION BLURRED [None]
  - MICTURITION URGENCY [None]
